FAERS Safety Report 15965010 (Version 11)
Quarter: 2021Q3

REPORT INFORMATION
  Report Type: Other
  Country: GB (occurrence: GB)
  Receive Date: 20190215
  Receipt Date: 20210804
  Transmission Date: 20211014
  Serious: Yes (Death, Other)
  Sender: FDA-Public Use
  Company Number: GB-ROCHE-1760118

PATIENT
  Age: 78 Year
  Sex: Female

DRUGS (53)
  1. LINAGLIPTIN [Concomitant]
     Active Substance: LINAGLIPTIN
     Route: 048
     Dates: start: 201809, end: 201905
  2. MAGNESIUM GLYCEROPHOSPHATE [Concomitant]
     Active Substance: MAGNESIUM GLYCEROPHOSPHATE
     Indication: HYPOMAGNESAEMIA
     Route: 048
     Dates: start: 20160526, end: 20160530
  3. METFORMIN [Concomitant]
     Active Substance: METFORMIN HYDROCHLORIDE
  4. PHOSPHATE SANDOZ [Concomitant]
     Active Substance: SODIUM PHOSPHATE, MONOBASIC, ANHYDROUS
     Route: 048
     Dates: start: 20190618, end: 20190625
  5. ZOPICLONE [Concomitant]
     Active Substance: ZOPICLONE
     Route: 048
     Dates: start: 20160217
  6. TRASTUZUMAB. [Suspect]
     Active Substance: TRASTUZUMAB
     Indication: BREAST CANCER METASTATIC
     Dosage: LOADING DOSE
     Route: 041
     Dates: start: 20160225, end: 20160225
  7. TRASTUZUMAB. [Suspect]
     Active Substance: TRASTUZUMAB
     Dosage: MAINTAINENCE DOSE.
     Route: 042
     Dates: start: 20160225, end: 20160617
  8. ATORVASTATIN [Concomitant]
     Active Substance: ATORVASTATIN
     Route: 048
  9. CINACALCET. [Concomitant]
     Active Substance: CINACALCET
     Indication: HYPERCALCAEMIA OF MALIGNANCY
     Route: 048
     Dates: start: 20190413
  10. DENOSUMAB [Concomitant]
     Active Substance: DENOSUMAB
     Dosage: EVERY 3?4 WEEKS
     Route: 058
     Dates: start: 20180110, end: 20190426
  11. DOCUSATE SODIUM. [Concomitant]
     Active Substance: DOCUSATE SODIUM
     Route: 048
  12. AMLODIPINE [Concomitant]
     Active Substance: AMLODIPINE BESYLATE
     Indication: HYPERTENSION
     Route: 048
     Dates: start: 20180915, end: 20190529
  13. OCTASA [Concomitant]
     Active Substance: MESALAMINE
     Indication: GASTROINTESTINAL MOTILITY DISORDER
     Route: 048
     Dates: start: 20170523, end: 2017
  14. ZOLEDRONIC ACID [Concomitant]
     Active Substance: ZOLEDRONIC ACID
     Route: 042
     Dates: start: 20160226
  15. NERATINIB [Suspect]
     Active Substance: NERATINIB
     Indication: PRODUCT USED FOR UNKNOWN INDICATION
     Route: 048
     Dates: start: 20190403
  16. BUDESONIDE. [Concomitant]
     Active Substance: BUDESONIDE
     Route: 048
     Dates: start: 20190403
  17. GLICLAZIDE [Concomitant]
     Active Substance: GLICLAZIDE
     Route: 048
     Dates: start: 201809, end: 20190424
  18. ZOLEDRONIC ACID [Concomitant]
     Active Substance: ZOLEDRONIC ACID
     Route: 042
     Dates: start: 20170628, end: 20171220
  19. ZOLEDRONIC ACID [Concomitant]
     Active Substance: ZOLEDRONIC ACID
     Route: 042
     Dates: start: 20190408, end: 20190408
  20. PHOSPHATE SANDOZ [Concomitant]
     Active Substance: SODIUM PHOSPHATE, MONOBASIC, ANHYDROUS
     Indication: BLOOD PHOSPHORUS DECREASED
     Route: 048
     Dates: start: 20190423, end: 20190425
  21. RIVAROXABAN [Concomitant]
     Active Substance: RIVAROXABAN
     Route: 048
     Dates: start: 20181128
  22. SITAGLIPTIN [Concomitant]
     Active Substance: SITAGLIPTIN
     Route: 048
  23. TINZAPARIN [Concomitant]
     Active Substance: TINZAPARIN
     Dosage: 11000 UNIT
     Route: 058
     Dates: start: 20180915, end: 20181128
  24. TRASTUZUMAB. [Suspect]
     Active Substance: TRASTUZUMAB
     Route: 042
     Dates: start: 20160707, end: 20180822
  25. ACTRAPID [Concomitant]
     Active Substance: INSULIN HUMAN
     Route: 058
     Dates: start: 20190620, end: 20190705
  26. GLICLAZIDE [Concomitant]
     Active Substance: GLICLAZIDE
     Route: 048
     Dates: start: 20190620, end: 20190705
  27. MACROGOL [Concomitant]
     Active Substance: POLYETHYLENE GLYCOLS
     Dosage: SACHET
  28. BUDESONIDE. [Concomitant]
     Active Substance: BUDESONIDE
     Route: 048
     Dates: start: 20190403, end: 20190523
  29. TRASTUZUMAB EMTANSINE [Suspect]
     Active Substance: ADO-TRASTUZUMAB EMTANSINE
     Indication: BREAST CANCER METASTATIC
     Route: 042
     Dates: start: 20180928, end: 20190315
  30. LETROZOLE. [Suspect]
     Active Substance: LETROZOLE
     Indication: PRODUCT USED FOR UNKNOWN INDICATION
     Route: 048
     Dates: start: 20160413, end: 20180704
  31. PERTUZUMAB. [Suspect]
     Active Substance: PERTUZUMAB
     Indication: BREAST CANCER METASTATIC
     Dosage: LOADING DOSE
     Route: 042
     Dates: start: 20160225, end: 20160225
  32. PERTUZUMAB. [Suspect]
     Active Substance: PERTUZUMAB
     Dosage: MAINTAINENCE DOSE
     Route: 042
     Dates: start: 20160225, end: 20180704
  33. TAMOXIFEN [Suspect]
     Active Substance: TAMOXIFEN
     Indication: BREAST CANCER METASTATIC
     Route: 048
     Dates: start: 20180704, end: 20180915
  34. AMLODIPINE [Concomitant]
     Active Substance: AMLODIPINE BESYLATE
     Indication: HYPERTENSION
     Route: 048
  35. PHOSPHATE?SANDOZ (UNITED KINGDOM) [Concomitant]
     Indication: HYPOPHOSPHATAEMIA
     Dosage: 2 TABLETS
     Route: 048
     Dates: start: 20190611, end: 20190614
  36. CHLORHEXIDINE GLUCONATE. [Concomitant]
     Active Substance: CHLORHEXIDINE GLUCONATE
     Dosage: MOUTH WASH
     Route: 048
     Dates: start: 20160225
  37. DEXAMETHASONE. [Concomitant]
     Active Substance: DEXAMETHASONE
     Route: 048
     Dates: start: 20160225
  38. METOCLOPRAMIDE. [Concomitant]
     Active Substance: METOCLOPRAMIDE
     Route: 048
  39. POTASSIUM CHLORIDE. [Concomitant]
     Active Substance: POTASSIUM CHLORIDE
     Indication: BLOOD POTASSIUM DECREASED
     Dosage: MMOL/L
     Route: 042
     Dates: start: 20190611, end: 20190620
  40. TRAMADOL HYDROCHLORIDE. [Concomitant]
     Active Substance: TRAMADOL HYDROCHLORIDE
     Route: 048
     Dates: start: 20160217
  41. POTASSIUM CHLORIDE. [Concomitant]
     Active Substance: POTASSIUM CHLORIDE
     Dosage: EVERY 3?4WEEKS FOR 9 CYCLES THEN 3 MONTS
     Route: 042
     Dates: start: 20190611, end: 20190620
  42. BENZYDAMINE HYDROCHLORIDE [Concomitant]
     Active Substance: BENZYDAMINE HYDROCHLORIDE
     Indication: GLOSSODYNIA
     Route: 061
     Dates: start: 20190606, end: 20190705
  43. CANDESARTAN. [Concomitant]
     Active Substance: CANDESARTAN
     Route: 048
  44. DENOSUMAB [Concomitant]
     Active Substance: DENOSUMAB
     Route: 058
     Dates: start: 20180110
  45. DOMPERIDONE [Concomitant]
     Active Substance: DOMPERIDONE
     Route: 048
     Dates: start: 20160225
  46. GLICLAZIDE [Concomitant]
     Active Substance: GLICLAZIDE
     Route: 048
     Dates: start: 20190425, end: 201905
  47. ZOLEDRONIC ACID [Concomitant]
     Active Substance: ZOLEDRONIC ACID
     Route: 042
     Dates: start: 20170209, end: 20170323
  48. ZOLEDRONIC ACID [Concomitant]
     Active Substance: ZOLEDRONIC ACID
     Route: 042
     Dates: start: 20190510, end: 20190529
  49. SANDO?K [Concomitant]
     Dosage: EFFERVESCENT?2 TABLETS
     Route: 048
     Dates: start: 20160322, end: 20160326
  50. DOCETAXEL. [Suspect]
     Active Substance: DOCETAXEL
     Indication: BREAST CANCER METASTATIC
     Route: 042
     Dates: start: 20160226, end: 20160226
  51. ZOLEDRONIC ACID [Concomitant]
     Active Substance: ZOLEDRONIC ACID
     Dosage: EVERY 3?4WEEKS FOR 9 CYCLES THEN 3 MONTS
     Route: 042
     Dates: start: 20160414, end: 20170112
  52. PHOSPHATE SANDOZ [Concomitant]
     Active Substance: SODIUM PHOSPHATE, MONOBASIC, ANHYDROUS
     Route: 048
     Dates: start: 20190611, end: 20190614
  53. TRIMETHOPRIM. [Concomitant]
     Active Substance: TRIMETHOPRIM
     Indication: URINARY TRACT INFECTION
     Route: 048
     Dates: start: 20190412, end: 20190414

REACTIONS (13)
  - Rectal haemorrhage [Not Recovered/Not Resolved]
  - Hypomagnesaemia [Recovered/Resolved]
  - Urinary tract infection [Recovered/Resolved]
  - Diarrhoea [Recovered/Resolved]
  - Rash pruritic [Recovered/Resolved]
  - Decreased appetite [Not Recovered/Not Resolved]
  - Diarrhoea [Recovered/Resolved]
  - Back pain [Not Recovered/Not Resolved]
  - Acute kidney injury [Recovered/Resolved]
  - Vomiting [Recovered/Resolved]
  - Cholelithiasis [Not Recovered/Not Resolved]
  - Weight decreased [Recovered/Resolved]
  - Diarrhoea [Recovered/Resolved]

NARRATIVE: CASE EVENT DATE: 20160323
